FAERS Safety Report 15060710 (Version 1)
Quarter: 2018Q2

REPORT INFORMATION
  Report Type: Spontaneous
  Country: US (occurrence: US)
  Receive Date: 20180625
  Receipt Date: 20180625
  Transmission Date: 20180711
  Serious: Yes (Other)
  Sender: FDA-Public Use
  Company Number: US-ELI_LILLY_AND_COMPANY-US201806009963

PATIENT
  Sex: Female

DRUGS (2)
  1. CYMBALTA [Suspect]
     Active Substance: DULOXETINE HYDROCHLORIDE
     Indication: DEPRESSION
     Dosage: UNK, UNKNOWN
     Route: 048
  2. DULOXETINE HYDROCHLORIDE. [Suspect]
     Active Substance: DULOXETINE HYDROCHLORIDE
     Indication: DEPRESSION
     Dosage: UNK, UNKNOWN
     Route: 048
     Dates: start: 2014, end: 2014

REACTIONS (14)
  - Hyperacusis [Recovered/Resolved]
  - Headache [Recovered/Resolved]
  - Asthenia [Recovered/Resolved]
  - Vision blurred [Recovered/Resolved]
  - Tinnitus [Recovered/Resolved]
  - Drug ineffective [Recovered/Resolved]
  - Drug withdrawal syndrome [Recovered/Resolved]
  - Thinking abnormal [Recovered/Resolved]
  - Depression [Recovered/Resolved]
  - Feeling abnormal [Recovered/Resolved]
  - Feeling abnormal [Not Recovered/Not Resolved]
  - Photosensitivity reaction [Recovered/Resolved]
  - Vomiting [Recovered/Resolved]
  - Dizziness [Recovered/Resolved]
